FAERS Safety Report 5374126-2 (Version None)
Quarter: 2007Q2

REPORT INFORMATION
  Report Type: 
  Country: None (occurrence: None)
  Receive Date: 20070627
  Receipt Date: 20070620
  Transmission Date: 20071010
  Serious: Yes (Death, Life-Threatening)
  Sender: FDA-Public Use
  Company Number: 2006P1000557

PATIENT
  Age: 73 Year
  Sex: Female
  Weight: 70 kg

DRUGS (12)
  1. RETEPLASE VS. PLACEBO (NO PREF. NAME) [Suspect]
     Indication: ACUTE MYOCARDIAL INFARCTION
     Dosage: ; IV
     Route: 042
     Dates: start: 20061031, end: 20061031
  2. ABCIXIMAB (ABCIXIMAB) [Suspect]
     Indication: ACUTE MYOCARDIAL INFARCTION
     Dosage: ; IV
     Route: 042
     Dates: start: 20061031, end: 20061031
  3. INSULIN HUMAN [Concomitant]
  4. ENOXAPARIN SODIUM [Concomitant]
  5. ASPIRIN [Concomitant]
  6. CLOPIDOGREL BISULFATE [Concomitant]
  7. ATORVASTATIN [Concomitant]
  8. PANTOPRAZOLE SODIUM [Concomitant]
  9. PARACETAMOL [Concomitant]
  10. TRIMETHOPRIM [Concomitant]
  11. MEROPENEM [Concomitant]
  12. INSULIN [Concomitant]

REACTIONS (11)
  - ACUTE MYOCARDIAL INFARCTION [None]
  - BRONCHOPNEUMONIA [None]
  - CARDIAC ARREST [None]
  - DIABETES MELLITUS INSULIN-DEPENDENT [None]
  - EMBOLISM [None]
  - HAEMODYNAMIC INSTABILITY [None]
  - MULTI-ORGAN FAILURE [None]
  - PROCEDURAL COMPLICATION [None]
  - SEPSIS [None]
  - TORSADE DE POINTES [None]
  - VENTRICULAR TACHYCARDIA [None]
